FAERS Safety Report 10049689 (Version 2)
Quarter: 2015Q2

REPORT INFORMATION
  Report Type: Spontaneous
  Country: IT (occurrence: None)
  Receive Date: 20140328
  Receipt Date: 20150528
  Transmission Date: 20150821
  Serious: Yes (Life-Threatening, Hospitalization)
  Sender: FDA-Public Use
  Company Number: 2014DEPIT00056

PATIENT
  Age: 42 Year
  Sex: Male
  Weight: 74 kg

DRUGS (3)
  1. DEPOCYT [Suspect]
     Active Substance: CYTARABINE
     Indication: ACUTE LYMPHOCYTIC LEUKAEMIA
     Route: 037
     Dates: start: 20120123, end: 20120123
  2. DEXSMETHASONE (DEXAMETHASONE SODIUM PHOSPHATE) [Concomitant]
  3. G-CSF [Concomitant]
     Active Substance: GRANULOCYTE COLONY-STIMULATING FACTOR NOS

REACTIONS (4)
  - Somnolence [None]
  - Depressed level of consciousness [None]
  - Coma [None]
  - Staphylococcal infection [None]

NARRATIVE: CASE EVENT DATE: 20120217
